FAERS Safety Report 19387378 (Version 1)
Quarter: 2021Q2

REPORT INFORMATION
  Report Type: Spontaneous
  Country: ES (occurrence: ES)
  Receive Date: 20210608
  Receipt Date: 20210608
  Transmission Date: 20210717
  Serious: Yes (Hospitalization)
  Sender: FDA-Public Use
  Company Number: ES-SA-2021SA185950

PATIENT
  Age: 30 Year
  Sex: Male
  Weight: 76 kg

DRUGS (3)
  1. SERTRALINE [Interacting]
     Active Substance: SERTRALINE HYDROCHLORIDE
     Dosage: 50 MG, QD
     Route: 048
     Dates: start: 20050101
  2. GLIMEPIRIDE. [Suspect]
     Active Substance: GLIMEPIRIDE
     Indication: DIABETES INSIPIDUS
     Dosage: UNK
     Route: 048
     Dates: start: 20200701
  3. DUTASTERIDE. [Interacting]
     Active Substance: DUTASTERIDE
     Indication: BIPOLAR DISORDER
     Dosage: 2.5 MG
     Route: 048
     Dates: start: 20050101, end: 20210507

REACTIONS (3)
  - Asthenia [Recovering/Resolving]
  - Tremor [Recovering/Resolving]
  - Confusional state [Recovering/Resolving]

NARRATIVE: CASE EVENT DATE: 20210405
